FAERS Safety Report 24594900 (Version 1)
Quarter: 2024Q4

REPORT INFORMATION
  Report Type: Spontaneous
  Country: CN (occurrence: CN)
  Receive Date: 20241108
  Receipt Date: 20241108
  Transmission Date: 20250114
  Serious: Yes (Life-Threatening)
  Sender: NOVARTIS
  Company Number: CN-002147023-NVSC2024CN216436

PATIENT
  Age: 3 Year
  Sex: Female
  Weight: 20 kg

DRUGS (1)
  1. TOBRAMYCIN [Suspect]
     Active Substance: TOBRAMYCIN\TOBRAMYCIN SULFATE
     Indication: Infection
     Dosage: 0.200 ML, 8QD (0.5ML OF THE DRUG)
     Route: 047
     Dates: start: 20241029, end: 20241029

REACTIONS (12)
  - Shock [Recovering/Resolving]
  - Eye pain [Recovering/Resolving]
  - Erythema of eyelid [Recovering/Resolving]
  - Swelling of eyelid [Recovering/Resolving]
  - Restlessness [Recovering/Resolving]
  - Tachypnoea [Recovering/Resolving]
  - Pallor [Recovering/Resolving]
  - Heart rate increased [Recovering/Resolving]
  - Conjunctival hyperaemia [Recovering/Resolving]
  - Eye oedema [Recovering/Resolving]
  - Corneal lesion [Recovering/Resolving]
  - Eye disorder [Recovering/Resolving]

NARRATIVE: CASE EVENT DATE: 20241029
